FAERS Safety Report 4428063-8 (Version None)
Quarter: 2004Q3

REPORT INFORMATION
  Report Type: 
  Country: None (occurrence: None)
  Receive Date: 20040813
  Receipt Date: 20040106
  Transmission Date: 20050211
  Serious: Yes (Death, Hospitalization)
  Sender: FDA-Public Use
  Company Number: 04P-163-0246956-00

PATIENT
  Age: 70 Year
  Sex: Female

DRUGS (8)
  1. WARFARIN SODIUM [Suspect]
     Indication: ANTICOAGULANT THERAPY
     Dosage: 10 MG ; 5 MG ; 10 MG, 1 IN 1 D
     Dates: start: 19980621, end: 19980712
  2. WARFARIN SODIUM [Suspect]
     Indication: ANTICOAGULANT THERAPY
     Dosage: 10 MG ; 5 MG ; 10 MG, 1 IN 1 D
     Dates: start: 19980814, end: 19980820
  3. WARFARIN SODIUM [Suspect]
     Indication: ANTICOAGULANT THERAPY
     Dosage: 10 MG ; 5 MG ; 10 MG, 1 IN 1 D
     Dates: start: 19980814, end: 19980820
  4. FOSINOPRIL SODIUM [Concomitant]
  5. SIMVASTATIN [Concomitant]
  6. FERROUS SULFATE TAB [Concomitant]
  7. HYDROCODONE [Concomitant]
  8. TAMOXIFEN [Concomitant]

REACTIONS (18)
  - BLOODY DISCHARGE [None]
  - CELLULITIS [None]
  - DERMATITIS BULLOUS [None]
  - DERMATITIS EXFOLIATIVE [None]
  - ECCHYMOSIS [None]
  - ESCHAR [None]
  - INFLAMMATION [None]
  - INTERNATIONAL NORMALISED RATIO ABNORMAL [None]
  - LEUKOCYTOSIS [None]
  - MULTI-ORGAN FAILURE [None]
  - NECROSIS ISCHAEMIC [None]
  - RASH ERYTHEMATOUS [None]
  - SKIN NECROSIS [None]
  - SWELLING [None]
  - THROMBOCYTOPENIA [None]
  - THROMBOSIS [None]
  - WOUND COMPLICATION [None]
  - WOUND SECRETION [None]
